FAERS Safety Report 13512708 (Version 1)
Quarter: 2017Q2

REPORT INFORMATION
  Report Type: Spontaneous
  Country: AU (occurrence: AU)
  Receive Date: 20170504
  Receipt Date: 20170504
  Transmission Date: 20170830
  Serious: Yes (Hospitalization)
  Sender: FDA-Public Use
  Company Number: AU-ROCHE-1925835

PATIENT
  Age: 87 Year
  Sex: Male

DRUGS (4)
  1. CHLORAMBUCIL [Suspect]
     Active Substance: CHLORAMBUCIL
     Indication: CHRONIC LYMPHOCYTIC LEUKAEMIA
     Route: 065
  2. GAZYVA [Suspect]
     Active Substance: OBINUTUZUMAB
     Dosage: 900MG IN 250MLS
     Route: 042
  3. GAZYVA [Suspect]
     Active Substance: OBINUTUZUMAB
     Dosage: 1000MG OBINUTUZUMAB IN 250MLS 0.9% NS (NORMAL SALINE)
     Route: 042
  4. GAZYVA [Suspect]
     Active Substance: OBINUTUZUMAB
     Indication: CHRONIC LYMPHOCYTIC LEUKAEMIA
     Dosage: C1D1 100MG IN 100MLS
     Route: 042

REACTIONS (11)
  - Gastrooesophageal reflux disease [Unknown]
  - Weight increased [Unknown]
  - Platelet count increased [Unknown]
  - Blood pressure decreased [Unknown]
  - Haemoglobin increased [Unknown]
  - Haemoglobin decreased [Unknown]
  - White blood cell count decreased [Unknown]
  - Cyst [Unknown]
  - Weight decreased [Unknown]
  - Haematuria [Unknown]
  - Prostatomegaly [Unknown]
